FAERS Safety Report 7884429-5 (Version None)
Quarter: 2011Q4

REPORT INFORMATION
  Report Type: 
  Country: None (occurrence: None)
  Receive Date: 20111102
  Receipt Date: 20110727
  Transmission Date: 20120403
  Serious: No
  Sender: FDA-Public Use
  Company Number: US-ASTRAZENECA-2011SE31385

PATIENT
  Age: 55 Year
  Sex: Female

DRUGS (9)
  1. CALCITRIOL [Concomitant]
  2. CALCIUM+D [Concomitant]
  3. FENTANYL [Concomitant]
  4. OMEPRAZOLE [Concomitant]
  5. VANDETANIB [Suspect]
     Indication: THYROID CANCER
     Route: 048
     Dates: start: 20110426
  6. LISINOPRIL [Concomitant]
  7. CLONIDINE HCL [Concomitant]
  8. SYNTHROID [Concomitant]
  9. VICODIN [Concomitant]

REACTIONS (3)
  - HEART RATE INCREASED [None]
  - ACNE [None]
  - DIARRHOEA [None]
